FAERS Safety Report 6601034-9 (Version None)
Quarter: 2010Q1

REPORT INFORMATION
  Report Type: 
  Country: None (occurrence: None)
  Receive Date: 20100225
  Receipt Date: 20100216
  Transmission Date: 20100710
  Serious: Yes (Hospitalization)
  Sender: FDA-Public Use
  Company Number: US-JNJFOC-20100208396

PATIENT
  Sex: Female

DRUGS (7)
  1. FENTANYL-100 [Suspect]
     Indication: PAIN
     Dosage: 100UG/HR+50UG/HR
     Route: 062
  2. TOPAMAX [Concomitant]
     Indication: NEUROPATHY PERIPHERAL
     Route: 048
  3. FLEXERIL [Concomitant]
     Indication: MUSCLE DISORDER
     Route: 048
  4. PREVACID [Concomitant]
     Indication: GASTROOESOPHAGEAL REFLUX DISEASE
     Route: 048
  5. ZOLOFT [Concomitant]
     Indication: DEPRESSION
     Route: 048
  6. PROVIGIL [Concomitant]
     Indication: BEDRIDDEN
     Route: 048
  7. ABILIFY [Concomitant]
     Indication: BEDRIDDEN
     Route: 048

REACTIONS (3)
  - DRUG INEFFECTIVE [None]
  - UTERINE DISORDER [None]
  - UTERINE LEIOMYOMA [None]
